FAERS Safety Report 8093092-2 (Version None)
Quarter: 2012Q1

REPORT INFORMATION
  Report Type: 
  Country: None (occurrence: None)
  Receive Date: 20120128
  Receipt Date: 20110914
  Transmission Date: 20120608
  Serious: No
  Sender: FDA-Public Use
  Company Number: US-ABBOTT-11P-163-0849650-00

PATIENT
  Age: 64 Year
  Sex: Female

DRUGS (10)
  1. LORATADINE [Concomitant]
     Indication: HYPERSENSITIVITY
     Dosage: OTC 10 MG DAILY
  2. ACTOS [Concomitant]
     Indication: DIABETES MELLITUS
     Dosage: 45 MG DAILY
  3. MELOXICAM [Concomitant]
     Indication: PSORIATIC ARTHROPATHY
     Dosage: 15 MG DAILY
  4. LIPITOR [Concomitant]
     Indication: BLOOD CHOLESTEROL INCREASED
     Dosage: 10 MG DAILY
  5. LEVOTHYROXINE SODIUM [Concomitant]
     Indication: HYPOTHYROIDISM
     Dosage: 112 MG DAILY
  6. JANUVIA [Concomitant]
     Indication: DIABETES MELLITUS
     Dosage: 100 MG DAILY
  7. HUMIRA [Suspect]
     Indication: PSORIATIC ARTHROPATHY
     Dates: start: 20110819
  8. TRICOR [Concomitant]
     Indication: BLOOD TRIGLYCERIDES INCREASED
     Dosage: 145 MG DAILY
  9. SORIATANE [Concomitant]
     Indication: PSORIASIS
     Dosage: 25  MG DAILY
  10. TOPICAL OINTMENTS [Concomitant]
     Indication: PSORIASIS
     Route: 061

REACTIONS (2)
  - OROPHARYNGEAL PAIN [None]
  - INJECTION SITE PAIN [None]
